FAERS Safety Report 7121865-9 (Version None)
Quarter: 2010Q4

REPORT INFORMATION
  Report Type: 
  Country: None (occurrence: None)
  Receive Date: 20101124
  Receipt Date: 20101112
  Transmission Date: 20110411
  Serious: Yes (Death)
  Sender: FDA-Public Use
  Company Number: US-GENZYME-CAMP-1001135

PATIENT

DRUGS (2)
  1. CAMPATH [Suspect]
     Indication: ORGAN TRANSPLANT
     Dosage: UNK
     Route: 065
  2. TACROLIMUS [Concomitant]
     Indication: ORGAN TRANSPLANT
     Dosage: UNK
     Route: 065

REACTIONS (3)
  - ANAEMIA HAEMOLYTIC AUTOIMMUNE [None]
  - HAEMOLYSIS [None]
  - MULTI-ORGAN DISORDER [None]
